FAERS Safety Report 17628745 (Version 5)
Quarter: 2021Q1

REPORT INFORMATION
  Report Type: Spontaneous
  Country: US (occurrence: US)
  Receive Date: 20200406
  Receipt Date: 20210315
  Transmission Date: 20210419
  Serious: Yes (Death, Other)
  Sender: FDA-Public Use
  Company Number: US-GLAXOSMITHKLINE-US2020AMR057518

PATIENT
  Sex: Female

DRUGS (4)
  1. ZEJULA [Suspect]
     Active Substance: NIRAPARIB
     Indication: OVARIAN CANCER
     Dosage: 200 MG, QD
     Route: 048
     Dates: start: 20181228
  2. ZEJULA [Suspect]
     Active Substance: NIRAPARIB
     Dosage: 2 DF, QD (AT BEDTIME)
     Route: 048
  3. ZEJULA [Suspect]
     Active Substance: NIRAPARIB
     Dosage: 200 MG
     Route: 065
  4. ZEJULA [Suspect]
     Active Substance: NIRAPARIB
     Dosage: 200 MG

REACTIONS (4)
  - Pancreatic carcinoma [Unknown]
  - Death [Fatal]
  - Thrombosis [Unknown]
  - Nausea [Recovering/Resolving]
